FAERS Safety Report 13444695 (Version 2)
Quarter: 2017Q3

REPORT INFORMATION
  Report Type: Spontaneous
  Country: FR (occurrence: FR)
  Receive Date: 20170414
  Receipt Date: 20170713
  Transmission Date: 20171127
  Serious: Yes (Other)
  Sender: FDA-Public Use
  Company Number: FR-PFIZER INC-2017163792

PATIENT
  Age: 19 Year
  Sex: Female

DRUGS (7)
  1. PRIMPERAN [Concomitant]
     Active Substance: METOCLOPRAMIDE HYDROCHLORIDE
     Dosage: UNK
     Dates: start: 20001221
  2. TEMGESIC [Concomitant]
     Active Substance: BUPRENORPHINE HYDROCHLORIDE
     Dosage: 1 DF, UNK
     Route: 048
     Dates: start: 20001221
  3. MIFEGYNE [Suspect]
     Active Substance: MIFEPRISTONE
     Indication: ABORTION INDUCED
     Dosage: 600 MG, TOTAL
     Route: 048
     Dates: start: 20001219, end: 20001219
  4. PRO-DAFALGAN [Concomitant]
     Active Substance: PROPACETAMOL HYDROCHLORIDE
     Dosage: 2 G, UNK
     Route: 042
     Dates: start: 20001221
  5. CYTOTEC [Suspect]
     Active Substance: MISOPROSTOL
     Indication: ABORTION INDUCED
     Dosage: 800 UG, TOTAL
     Route: 048
     Dates: start: 20001221, end: 20001221
  6. MONOCLINE [Concomitant]
     Active Substance: DOXYCYCLINE
     Dosage: 1 DF, UNK
     Route: 048
     Dates: start: 20001221
  7. PROFENID [Concomitant]
     Active Substance: KETOPROFEN
     Dosage: 100 MG, UNK
     Route: 042
     Dates: start: 20001221

REACTIONS (3)
  - Product use in unapproved indication [Unknown]
  - Vomiting [Recovered/Resolved]
  - Angioedema [Recovered/Resolved]

NARRATIVE: CASE EVENT DATE: 20001221
